FAERS Safety Report 5312568-1 (Version None)
Quarter: 2007Q2

REPORT INFORMATION
  Report Type: 
  Country: None (occurrence: None)
  Receive Date: 20070430
  Receipt Date: 20070116
  Transmission Date: 20071010
  Serious: No
  Sender: FDA-Public Use
  Company Number: 2007UW00791

PATIENT
  Age: 68 Year
  Sex: Female
  Weight: 62.6 kg

DRUGS (2)
  1. NEXIUM [Suspect]
     Indication: GASTRITIS
     Route: 048
     Dates: start: 20030101
  2. NEXIUM [Suspect]
     Indication: ULCER
     Route: 048
     Dates: start: 20030101

REACTIONS (1)
  - RESORPTION BONE INCREASED [None]
